FAERS Safety Report 15304733 (Version 2)
Quarter: 2018Q4

REPORT INFORMATION
  Report Type: Spontaneous
  Country: US (occurrence: US)
  Receive Date: 20180821
  Receipt Date: 20181101
  Transmission Date: 20190204
  Serious: No
  Sender: FDA-Public Use
  Company Number: US-PFIZER INC-2018332677

PATIENT
  Age: 18 Year
  Sex: Female
  Weight: 74 kg

DRUGS (2)
  1. XELJANZ [Suspect]
     Active Substance: TOFACITINIB CITRATE
     Indication: COLITIS ULCERATIVE
     Dosage: 5 MG, 2X/DAY
     Route: 048
     Dates: start: 20180724
  2. SENNA-S [Concomitant]
     Active Substance: DOCUSATE SODIUM\SENNOSIDES
     Dosage: UNK (DOCUSATE SODIUM: 50 MG; SENNA ALEXANDRINA: 8.6 MG)

REACTIONS (6)
  - Dizziness [Unknown]
  - Cough [Unknown]
  - Product use issue [Unknown]
  - Weight increased [Unknown]
  - Candida infection [Unknown]
  - Temporomandibular joint syndrome [Unknown]

NARRATIVE: CASE EVENT DATE: 2018
